FAERS Safety Report 26168867 (Version 1)
Quarter: 2025Q4

REPORT INFORMATION
  Report Type: Spontaneous
  Country: US (occurrence: US)
  Receive Date: 20251217
  Receipt Date: 20251217
  Transmission Date: 20260118
  Serious: No
  Sender: PACIRA
  Company Number: US-ORG100016242-2025000294

PATIENT
  Sex: Female

DRUGS (1)
  1. EXPAREL [Suspect]
     Active Substance: BUPIVACAINE
     Indication: Nerve block
     Dosage: IN LOWER LEFT LEG
     Route: 050

REACTIONS (4)
  - Therapeutic response shortened [Unknown]
  - Drug ineffective [Unknown]
  - Drug tolerance [Unknown]
  - Procedural pain [Not Recovered/Not Resolved]
